FAERS Safety Report 8829001 (Version 1)
Quarter: 2012Q4

REPORT INFORMATION
  Report Type: Spontaneous
  Country: US (occurrence: None)
  Receive Date: 20121005
  Receipt Date: 20121005
  Transmission Date: 20130627
  Serious: Yes (Life-Threatening, Hospitalization, Disabling)
  Sender: FDA-Public Use
  Company Number: None

PATIENT
  Sex: Female
  Weight: 77.11 kg

DRUGS (1)
  1. COLCRYS [Suspect]
     Indication: ANKLES SWOLLEN
     Dosage: 3/27 10 AM to 10 pm 0.6 mg 2 tablet 1 every hour see narrative

REACTIONS (18)
  - Diarrhoea [None]
  - Palpitations [None]
  - Dry mouth [None]
  - Neuropathy peripheral [None]
  - Gastrointestinal disorder [None]
  - Flatulence [None]
  - Diarrhoea [None]
  - Frequent bowel movements [None]
  - Skin fissures [None]
  - Gait disturbance [None]
  - Arthralgia [None]
  - Diplopia [None]
  - Scab [None]
  - Overdose [None]
  - Dyspnoea [None]
  - Ageusia [None]
  - Feeling abnormal [None]
  - Unevaluable event [None]
